FAERS Safety Report 8523242 (Version 5)
Quarter: 2013Q1

REPORT INFORMATION
  Report Type: Spontaneous
  Country: US (occurrence: US)
  Receive Date: 20120420
  Receipt Date: 20130301
  Transmission Date: 20140127
  Serious: Yes (Hospitalization, Other)
  Sender: FDA-Public Use
  Company Number: PHEH2012US007677

PATIENT
  Sex: Female
  Weight: 67 kg

DRUGS (20)
  1. GLEEVEC [Suspect]
     Indication: CHRONIC MYELOID LEUKAEMIA
     Dosage: 400 MG, QD
     Route: 048
     Dates: start: 200503, end: 201203
  2. ALLOPURINOL [Concomitant]
  3. IRON [Concomitant]
  4. ALLEGRA [Concomitant]
  5. LASIX [Concomitant]
  6. COUMADIN [Concomitant]
  7. SYNTHROID [Concomitant]
  8. MECLIZINE [Concomitant]
  9. SODIUM BICARBONATE [Concomitant]
  10. DIAZEPAN [Concomitant]
  11. CALTRATE [Concomitant]
  12. MAGNESIUM [Concomitant]
  13. OXYCODONE HYDROCHLORIDE [Concomitant]
  14. ZOCOR [Concomitant]
     Dosage: UNK UKN, UNK
  15. PRILOSEC [Concomitant]
     Dosage: UNK UKN, UNK
  16. HYDRALAZINE [Concomitant]
     Dosage: UNK UKN, UNK
  17. ISOSORBIDE [Concomitant]
     Dosage: UNK UKN, UNK
  18. NEPHROCAPS [Concomitant]
     Dosage: UNK UKN, UNK
  19. CARVEDILOL [Concomitant]
     Dosage: UNK
  20. BUMEX [Concomitant]

REACTIONS (9)
  - Dyspnoea [Recovering/Resolving]
  - Renal failure [Not Recovered/Not Resolved]
  - Cardiac murmur [Recovering/Resolving]
  - Blood glucose [Unknown]
  - Injury [Unknown]
  - Fall [Unknown]
  - Malaise [Unknown]
  - Haemoglobin decreased [Unknown]
  - Musculoskeletal discomfort [Recovering/Resolving]
